FAERS Safety Report 18519782 (Version 2)
Quarter: 2021Q1

REPORT INFORMATION
  Report Type: Spontaneous
  Country: HU (occurrence: HU)
  Receive Date: 20201118
  Receipt Date: 20210108
  Transmission Date: 20210419
  Serious: Yes (Death, Hospitalization, Other)
  Sender: FDA-Public Use
  Company Number: HU-SHIRE-HU202033312

PATIENT
  Age: 84 Year
  Sex: Male

DRUGS (1)
  1. TRAMADOL. [Suspect]
     Active Substance: TRAMADOL
     Indication: PRODUCT USED FOR UNKNOWN INDICATION
     Route: 065

REACTIONS (20)
  - Respiratory failure [Fatal]
  - Tachycardia [Fatal]
  - Blood glucose increased [Fatal]
  - Blood creatinine increased [Fatal]
  - Gastrointestinal disorder [Fatal]
  - Blood lactic acid increased [Fatal]
  - Polyneuropathy [Fatal]
  - Cardiac failure [Fatal]
  - Myopathy [Fatal]
  - White blood cell count increased [Fatal]
  - Hypotension [Fatal]
  - Vomiting [Fatal]
  - Abdominal pain [Fatal]
  - General physical health deterioration [Fatal]
  - Anaemia [Fatal]
  - Pleural effusion [Fatal]
  - Hypoxia [Fatal]
  - Pneumonia [Fatal]
  - Electrolyte imbalance [Fatal]
  - Blood urea increased [Fatal]
